FAERS Safety Report 11008265 (Version 1)
Quarter: 2015Q1

REPORT INFORMATION
  Report Type: Spontaneous
  Country: US (occurrence: None)
  Receive Date: 20150313
  Receipt Date: 20150313
  Transmission Date: 20150721
  Serious: No
  Sender: FDA-Public Use
  Company Number: 1303943

PATIENT
  Age: 36 Year
  Sex: Female
  Weight: 112.49 kg

DRUGS (10)
  1. SPIRIVA [Concomitant]
     Active Substance: TIOTROPIUM BROMIDE MONOHYDRATE
  2. ALBUTEROL SULFATE (SALBUTAMOL SULFATE) [Concomitant]
     Active Substance: ALBUTEROL SULFATE
  3. EPIPEN [Concomitant]
     Active Substance: EPINEPHRINE
  4. DULERA (FORMOTEROL FUMARATE, MOMETASONE FUROATE) [Concomitant]
  5. EPIPEN 2-PAK (EPINEPHRINE) [Concomitant]
  6. ALVESCO [Concomitant]
     Active Substance: CICLESONIDE
  7. SINGULAIR (MONTELUKAST SODIUM) [Concomitant]
  8. VENTOLIN [Suspect]
     Active Substance: ALBUTEROL SULFATE
  9. XOLAIR [Suspect]
     Active Substance: OMALIZUMAB
     Indication: ASTHMA
     Dosage: MOST RECENT INJECTION ON 16/OCT/2013. (300 MG, 1 IN 2 WK), SUBCUTANEOUS
     Route: 058
     Dates: start: 20131016
  10. BUDESONIDE. [Concomitant]
     Active Substance: BUDESONIDE

REACTIONS (15)
  - Chest pain [None]
  - Cough [None]
  - Drooling [None]
  - Rhinitis allergic [None]
  - Throat tightness [None]
  - Stridor [None]
  - Dyspnoea [None]
  - Pharyngeal oedema [None]
  - Chest discomfort [None]
  - Exercise tolerance decreased [None]
  - Speech disorder [None]
  - Fatigue [None]
  - Wheezing [None]
  - Asthma [None]
  - Vomiting [None]

NARRATIVE: CASE EVENT DATE: 20131112
